FAERS Safety Report 23134078 (Version 1)
Quarter: 2023Q4

REPORT INFORMATION
  Report Type: Spontaneous
  Country: US (occurrence: US)
  Receive Date: 20231101
  Receipt Date: 20231101
  Transmission Date: 20240110
  Serious: No
  Sender: FDA-Public Use
  Company Number: US-Covis Pharma GmbH-2023COV01725

PATIENT
  Age: 65 Year
  Sex: Female

DRUGS (1)
  1. OMNARIS [Suspect]
     Active Substance: CICLESONIDE
     Route: 045

REACTIONS (3)
  - Headache [Unknown]
  - Product dose omission issue [Unknown]
  - Exposure via skin contact [Unknown]

NARRATIVE: CASE EVENT DATE: 20230101
